FAERS Safety Report 8773131 (Version 1)
Quarter: 2012Q4

REPORT INFORMATION
  Report Type: 
  Country: JP (occurrence: JP)
  Receive Date: 20120907
  Receipt Date: 20120907
  Transmission Date: 20130627
  Serious: Yes (Death)
  Sender: FDA-Public Use
  Company Number: JP-ASTELLAS-2012JP008263

PATIENT
  Age: 58 Year
  Sex: Male

DRUGS (3)
  1. PROGRAF [Suspect]
     Indication: INTERSTITIAL LUNG DISEASE
     Route: 065
  2. PREDNISOLONE [Concomitant]
     Indication: INTERSTITIAL LUNG DISEASE
     Route: 065
  3. CYCLOPHOSPHAMIDE [Concomitant]
     Indication: INTERSTITIAL LUNG DISEASE
     Route: 042

REACTIONS (2)
  - Drug ineffective for unapproved indication [Unknown]
  - Interstitial lung disease [Fatal]
